FAERS Safety Report 10074176 (Version 4)
Quarter: 2014Q2

REPORT INFORMATION
  Report Type: Spontaneous
  Country: DE (occurrence: DE)
  Receive Date: 20140411
  Receipt Date: 20140609
  Transmission Date: 20141212
  Serious: Yes (Hospitalization, Disabling, Other)
  Sender: FDA-Public Use
  Company Number: DE-ABBVIE-14P-062-1225407-00

PATIENT
  Age: 41 Year
  Sex: Male
  Weight: 66 kg

DRUGS (29)
  1. KREON 40000 [Suspect]
     Indication: PRODUCT USED FOR UNKNOWN INDICATION
     Dosage: DAILYDOSE: 8 CAPSULER; 4000 I.U./GRAM FAT, RECOMMENDED DAILY DOSE 1,005,000 I.U.
     Route: 048
     Dates: start: 19820101
  2. BENALAPRIL [Concomitant]
     Indication: PRODUCT USED FOR UNKNOWN INDICATION
     Dosage: DAILY DOSE: 5 MG; ONE DOSE UNIT IN THE MORNINGS
     Route: 048
     Dates: start: 20020521
  3. PANTOPRAZOL [Concomitant]
     Indication: PRODUCT USED FOR UNKNOWN INDICATION
     Dosage: 1 IN THE MORNINGS: DAILY DOSE:20 MG
  4. AMITRIPTYLIN [Concomitant]
     Indication: PRODUCT USED FOR UNKNOWN INDICATION
     Dosage: 1 AT NIGHT: DAILY DOSE:25 MG
  5. MACROGOL [Concomitant]
     Indication: PRODUCT USED FOR UNKNOWN INDICATION
     Dosage: 1 EACH IN THE MORNINGS, NOON, AND IN THE EVENINGS
  6. AMYLASE W/LIPASE/PROTEASE [Concomitant]
     Indication: PRODUCT USED FOR UNKNOWN INDICATION
     Dosage: 6 EACH IN THE MORNINGS, NOON, AND IN THE EVENINGS
  7. CALCIUM VITAMIN D [Concomitant]
     Indication: PRODUCT USED FOR UNKNOWN INDICATION
     Dosage: 1 IN THE MORNINGS
  8. SITAGLIPTIN [Concomitant]
     Indication: PRODUCT USED FOR UNKNOWN INDICATION
     Dosage: 1 IN THE MORNINGS: DAILY DOSE:100 MG
  9. CEFUROXIM [Concomitant]
     Indication: PRODUCT USED FOR UNKNOWN INDICATION
     Dosage: DAY 2: 1 EACH IN THE MORNINGS AND EVENINGS;DAILY DOSE:1000 MG
  10. ALL OTHER THERAPEUTIC PRODUCTS [Concomitant]
     Indication: PRODUCT USED FOR UNKNOWN INDICATION
     Dosage: DAILY DOSE: 3325000 IU; ONE DOSE UNIT EACH IN THE MORNINGS AND EVENINGS
     Route: 055
     Dates: start: 20140203
  11. NACL [Concomitant]
     Indication: PRODUCT USED FOR UNKNOWN INDICATION
     Dosage: DAILY DOSE: 8ML; ONE DOSE UNIT EACH IN THE MORNINGS AND EVENINGS
     Dates: start: 20071022
  12. SPIRIVA [Concomitant]
     Indication: PRODUCT USED FOR UNKNOWN INDICATION
     Dosage: 1 IKA IN THE MORNINGS; 1 IN 1 DAY
     Route: 055
     Dates: start: 20090105
  13. SULTANOL [Concomitant]
     Indication: PRODUCT USED FOR UNKNOWN INDICATION
     Dosage: DAILY DOSE: 2 PUFF; BEFORE SPORTS: 1 IN 1 DAY
     Route: 055
     Dates: start: 20021029
  14. SULTANOL [Concomitant]
     Dosage: 1 INL EACH IN THE MORNINGS AND EVENINGS; 5MG/ML PER EACH 8 DROPS; 2 IN 1 DAY
     Route: 055
     Dates: start: 20101014
  15. ALL OTHER THERAPEUTIC PRODUCTS [Concomitant]
     Indication: PRODUCT USED FOR UNKNOWN INDICATION
     Dosage: 1 DOS EACH IN THE MORNINGS AND EVENINGS
     Route: 055
     Dates: start: 20020402
  16. AERIUS [Concomitant]
     Indication: PRODUCT USED FOR UNKNOWN INDICATION
     Route: 048
     Dates: start: 20090413
  17. ANTRAMUPS [Concomitant]
     Indication: PRODUCT USED FOR UNKNOWN INDICATION
     Dosage: DAILY DOSE: 1 TABLET; ONE DOSE UNIT IN THE MORNINGS
     Route: 048
     Dates: start: 20001214
  18. IBU 1A PHARMA [Concomitant]
     Indication: PRODUCT USED FOR UNKNOWN INDICATION
     Dosage: DAILY DOSE: 1 TABLET; ONE DOSE UNIT IN THE MORNINGS AND AS NEEDED
     Route: 048
     Dates: start: 20120202
  19. KANAVIT [Concomitant]
     Indication: PRODUCT USED FOR UNKNOWN INDICATION
     Dosage: ONE DOSE UNIT IN THE MORNINGS
     Route: 048
     Dates: start: 19910101
  20. NOVALGIN [Concomitant]
     Indication: PRODUCT USED FOR UNKNOWN INDICATION
     Dosage: DAILY DOSE: 1 TABLET; ONE DOSE UNIT IN THE MORNINGS
     Route: 048
     Dates: start: 20130404
  21. SAROTEN [Concomitant]
     Indication: PRODUCT USED FOR UNKNOWN INDICATION
     Dosage: DAILY DOSE: 50MG; ONE DOSE UNIT IN THE MORNINGS
     Route: 048
     Dates: start: 20100713
  22. URSOFALK [Concomitant]
     Indication: PRODUCT USED FOR UNKNOWN INDICATION
     Dosage: DAILY DOSE: 1000 MG; ONE DOSE UNIT EACH IN THE MORNINGS AND EVENINGS
     Route: 048
     Dates: start: 20060902
  23. VIGANTOLETTEN [Concomitant]
     Indication: PRODUCT USED FOR UNKNOWN INDICATION
     Dosage: DAILY DOSE: 1000 IU; ONE DOSE UNIT IN THE MORNINGS
     Route: 048
     Dates: start: 20121009
  24. VITAMIN A [Concomitant]
     Indication: PRODUCT USED FOR UNKNOWN INDICATION
     Route: 048
     Dates: start: 20080718
  25. VITAMIN E-400 [Concomitant]
     Indication: PRODUCT USED FOR UNKNOWN INDICATION
     Dosage: DAILY DOSE: 1 TABLET; ONE DOSE UNIT IN THE MORNINGS
     Route: 048
     Dates: start: 20100228
  26. ZITHROMAX [Concomitant]
     Indication: PRODUCT USED FOR UNKNOWN INDICATION
     Dosage: ONE DOSE UNIT IN THE MORNINGS, FREQUENCY 3 IN A WEEK
     Route: 048
     Dates: start: 20020521
  27. NASACORT [Concomitant]
     Indication: PRODUCT USED FOR UNKNOWN INDICATION
     Dosage: 1 NAS PER NOSTRIL IN THE EVENINGS; 1 IN 1 DAY
     Route: 045
     Dates: start: 20101014
  28. CAYSTON [Concomitant]
     Indication: PRODUCT USED FOR UNKNOWN INDICATION
     Dosage: 1 TRS IN THE EVENINGS; 1 IN 1 DAY
     Route: 055
     Dates: start: 20120626
  29. XELEVIA [Concomitant]
     Indication: PRODUCT USED FOR UNKNOWN INDICATION
     Dosage: DAILY DOSE: 100 MG; ONE DOSE UNIT IN THE MORNINGS
     Route: 048
     Dates: start: 20120202

REACTIONS (9)
  - Ileus [Unknown]
  - Distal intestinal obstruction syndrome [Recovered/Resolved]
  - Blood uric acid increased [Unknown]
  - Gout [Unknown]
  - Pneumonia pseudomonal [Unknown]
  - Bronchopulmonary aspergillosis [Unknown]
  - Cystic fibrosis related diabetes [Unknown]
  - Cystic fibrosis [Unknown]
  - Distal intestinal obstruction syndrome [Unknown]
